FAERS Safety Report 9912403 (Version 3)
Quarter: 2014Q1

REPORT INFORMATION
  Report Type: Spontaneous
  Country: PL (occurrence: PL)
  Receive Date: 20140220
  Receipt Date: 20140304
  Transmission Date: 20141002
  Serious: Yes (Hospitalization)
  Sender: FDA-Public Use
  Company Number: PL-ROCHE-1351243

PATIENT
  Age: 63 Year
  Sex: Female

DRUGS (4)
  1. MABTHERA [Suspect]
     Indication: RHEUMATOID ARTHRITIS
     Dosage: 2X1000 MG EVERY 6 MONTHS
     Route: 042
     Dates: start: 20121024
  2. METHOTREXATE [Concomitant]
     Indication: RHEUMATOID ARTHRITIS
     Route: 058
     Dates: start: 20091030
  3. METYPRED [Concomitant]
     Indication: RHEUMATOID ARTHRITIS
     Route: 048
  4. LETROX [Concomitant]
     Indication: AUTOIMMUNE THYROIDITIS
     Route: 048

REACTIONS (1)
  - Fear of eating [Recovering/Resolving]
